FAERS Safety Report 6176157-1 (Version None)
Quarter: 2009Q2

REPORT INFORMATION
  Report Type: 
  Country: None (occurrence: None)
  Receive Date: 20090501
  Receipt Date: 20090422
  Transmission Date: 20091009
  Serious: Yes (Hospitalization)
  Sender: FDA-Public Use
  Company Number: JP-JNJFOC-20080502198

PATIENT
  Sex: Female
  Weight: 47 kg

DRUGS (7)
  1. REMICADE [Suspect]
     Dosage: TOTAL # INFUSIONS: 12
     Route: 042
  2. REMICADE [Suspect]
     Dosage: 10 DOSES ON UNKNOWN DATES
     Route: 042
  3. REMICADE [Suspect]
     Indication: RHEUMATOID ARTHRITIS
     Dosage: 1ST INFUSION
     Route: 042
  4. METHOTREXATE [Suspect]
     Indication: RHEUMATOID ARTHRITIS
     Route: 048
  5. BENET [Concomitant]
     Indication: OSTEOPOROSIS
     Route: 048
  6. LOXONIN [Concomitant]
     Indication: RHEUMATOID ARTHRITIS
     Route: 048
  7. MECOBALAMIN [Concomitant]
     Indication: SPINAL OSTEOARTHRITIS
     Route: 048

REACTIONS (1)
  - PERITONEAL TUBERCULOSIS [None]
